FAERS Safety Report 8765332 (Version 1)
Quarter: 2012Q4

REPORT INFORMATION
  Report Type: 
  Country: IN (occurrence: IN)
  Receive Date: 20120830
  Receipt Date: 20120830
  Transmission Date: 20130627
  Serious: Yes (Other)
  Sender: FDA-Public Use
  Company Number: IN-ASTELLAS-2012JP008060

PATIENT
  Age: 10 Year
  Sex: Male

DRUGS (1)
  1. TACROLIMUS [Suspect]
     Indication: RENAL TRANSPLANT
     Dosage: 0.5 mg, bid
     Route: 048
     Dates: start: 20120807

REACTIONS (2)
  - Toxicity to various agents [Unknown]
  - Myelitis transverse [Unknown]
